FAERS Safety Report 4361228-2 (Version None)
Quarter: 2004Q2

REPORT INFORMATION
  Report Type: 
  Country: None (occurrence: None)
  Receive Date: 20040518
  Receipt Date: 20040430
  Transmission Date: 20050107
  Serious: Yes (Death, Hospitalization)
  Sender: FDA-Public Use
  Company Number: CERZ-10570

PATIENT
  Age: 24 Month
  Sex: Male
  Weight: 9 kg

DRUGS (1)
  1. CEREZYME [Suspect]
     Indication: GAUCHER'S DISEASE
     Dosage: 88.9 U/KG Q2WKS IV
     Route: 042
     Dates: start: 20021121, end: 20040326

REACTIONS (2)
  - PNEUMONIA [None]
  - STATUS EPILEPTICUS [None]
